FAERS Safety Report 10305020 (Version 1)
Quarter: 2014Q3

REPORT INFORMATION
  Report Type: Spontaneous
  Country: JP (occurrence: JP)
  Receive Date: 20140715
  Receipt Date: 20140715
  Transmission Date: 20150326
  Serious: Yes (Hospitalization)
  Sender: FDA-Public Use
  Company Number: JP-SA-2014SA091650

PATIENT
  Age: 81 Year
  Sex: Male

DRUGS (1)
  1. BCG FOR IMMUNOTHERAPY [Suspect]
     Active Substance: BCG VACCINE
     Indication: BLADDER CANCER
     Route: 065
     Dates: start: 201309, end: 201309

REACTIONS (3)
  - Ileus [Unknown]
  - Abdominal abscess [Unknown]
  - Abdominal pain lower [Unknown]
